FAERS Safety Report 4387673-7 (Version None)
Quarter: 2004Q2

REPORT INFORMATION
  Report Type: 
  Country: None (occurrence: None)
  Receive Date: 20040629
  Receipt Date: 20040629
  Transmission Date: 20050107
  Serious: Yes (Life-Threatening, Hospitalization)
  Sender: FDA-Public Use
  Company Number: None

PATIENT
  Sex: Male

DRUGS (3)
  1. TAXOTERE [Suspect]
     Indication: OESOPHAGEAL CARCINOMA
     Dosage: 30 MG/M2 IV
     Route: 042
     Dates: start: 20031031
  2. CISPLATIN [Suspect]
     Indication: OESOPHAGEAL CARCINOMA
     Dosage: 25 MG/M2 IV
     Route: 042
     Dates: start: 20031003
  3. CPT -11 (D1, 8 OF 21 DAY CYCLE) [Suspect]
     Indication: OESOPHAGEAL CARCINOMA
     Dosage: 50 MG/M2 IV
     Route: 042
     Dates: start: 20031031

REACTIONS (2)
  - CEREBROVASCULAR ACCIDENT [None]
  - EMBOLISM [None]
